FAERS Safety Report 8815513 (Version 1)
Quarter: 2012Q4

REPORT INFORMATION
  Report Type: 
  Country: QA (occurrence: GB)
  Receive Date: 20120928
  Receipt Date: 20120928
  Transmission Date: 20130627
  Serious: Yes (Hospitalization, Other)
  Sender: FDA-Public Use
  Company Number: QA-ABBOTT-12P-132-0985435-00

PATIENT
  Age: 77 Year
  Sex: Female
  Weight: 97 kg

DRUGS (1)
  1. HUMIRA [Suspect]
     Indication: RHEUMATOID ARTHRITIS
     Route: 058
     Dates: start: 20100528, end: 20120624

REACTIONS (4)
  - Cardiomyopathy [Unknown]
  - Gangrene [Unknown]
  - Chest pain [Unknown]
  - Oedema peripheral [Unknown]
